FAERS Safety Report 20390767 (Version 1)
Quarter: 2022Q1

REPORT INFORMATION
  Report Type: Spontaneous
  Country: AT (occurrence: AT)
  Receive Date: 20220128
  Receipt Date: 20220128
  Transmission Date: 20220424
  Serious: Yes (Other)
  Sender: FDA-Public Use
  Company Number: AT-SUN PHARMACEUTICAL INDUSTRIES LTD-2022R1-325190

PATIENT
  Age: 42 Year

DRUGS (1)
  1. TEMOZOLOMIDE [Suspect]
     Active Substance: TEMOZOLOMIDE
     Indication: Chemotherapy
     Dosage: UNK
     Route: 065

REACTIONS (1)
  - Disease progression [Unknown]
